FAERS Safety Report 11222716 (Version 5)
Quarter: 2015Q3

REPORT INFORMATION
  Report Type: Report from Study
  Country: JP (occurrence: JP)
  Receive Date: 20150626
  Receipt Date: 20150903
  Transmission Date: 20151125
  Serious: Yes (Hospitalization, Other)
  Sender: FDA-Public Use
  Company Number: JP-ASTELLAS-2015JP013086

PATIENT
  Age: 75 Year
  Sex: Female
  Weight: 41 kg

DRUGS (14)
  1. VESICARE [Suspect]
     Active Substance: SOLIFENACIN SUCCINATE
     Indication: HYPERTONIC BLADDER
     Route: 048
     Dates: start: 20150417, end: 20150731
  2. ROCEPHIN [Concomitant]
     Active Substance: CEFTRIAXONE SODIUM
     Indication: ARTHRITIS
     Route: 041
     Dates: start: 20150715, end: 20150721
  3. NEW LECICARBON [Concomitant]
     Active Substance: SODIUM BICARBONATE\SODIUM PHOSPHATE, MONOBASIC
     Indication: CONSTIPATION
     Route: 065
     Dates: start: 20150712, end: 20150712
  4. ADONA                              /00056903/ [Concomitant]
     Active Substance: CARBAZOCHROME SODIUM SULFONATE
     Indication: BLADDER TRANSITIONAL CELL CARCINOMA
     Route: 065
     Dates: start: 20150713, end: 20150714
  5. SODIUM PICOSULFATE [Concomitant]
     Active Substance: SODIUM PICOSULFATE
     Indication: CONSTIPATION
     Dosage: ADEQUATE DOSE
     Route: 048
     Dates: start: 20121205
  6. MIRABEGRON [Suspect]
     Active Substance: MIRABEGRON
     Indication: HYPERTONIC BLADDER
     Route: 048
     Dates: start: 20150327, end: 20150731
  7. MIYA-BM [Concomitant]
     Active Substance: CLOSTRIDIUM BUTYRICUM SPORES STRAIN M-55
     Indication: CONSTIPATION
     Route: 048
     Dates: start: 20140331
  8. RABEPRAZOLE NA [Concomitant]
     Indication: GASTROOESOPHAGEAL REFLUX DISEASE
     Route: 048
     Dates: start: 20130513
  9. FLUMARIN                           /00963302/ [Concomitant]
     Active Substance: FLOMOXEF SODIUM
     Indication: INFECTION PROPHYLAXIS
     Route: 041
     Dates: start: 20150713, end: 20150715
  10. BETANIS [Suspect]
     Active Substance: MIRABEGRON
     Indication: HYPERTONIC BLADDER
     Route: 048
     Dates: start: 20130627, end: 20150326
  11. HAEMOLEX [Concomitant]
     Indication: HAEMORRHOIDS
     Dosage: ADEQUATE DOSE
     Route: 061
     Dates: start: 20150110
  12. POLYFUL [Concomitant]
     Active Substance: CALCIUM POLYCARBOPHIL
     Indication: IRRITABLE BOWEL SYNDROME
     Route: 048
     Dates: start: 20150110
  13. MAGNESIUM OXIDE. [Concomitant]
     Active Substance: MAGNESIUM OXIDE
     Indication: CONSTIPATION
     Dosage: UNK, UNKNOWN FREQ.
     Route: 065
  14. MAGNESIUM OXIDE. [Concomitant]
     Active Substance: MAGNESIUM OXIDE
     Route: 048
     Dates: start: 20150701, end: 20150701

REACTIONS (4)
  - Urinary retention [Recovered/Resolved]
  - Arthritis [Recovered/Resolved]
  - Constipation [Recovered/Resolved]
  - Bladder transitional cell carcinoma [Recovering/Resolving]

NARRATIVE: CASE EVENT DATE: 20150611
